FAERS Safety Report 18392332 (Version 1)
Quarter: 2020Q4

REPORT INFORMATION
  Report Type: Spontaneous
  Country: US (occurrence: US)
  Receive Date: 20201016
  Receipt Date: 20201016
  Transmission Date: 20210114
  Serious: Yes (Hospitalization)
  Sender: FDA-Public Use
  Company Number: US-MYLANLABS-2020M1087085

PATIENT
  Age: 39 Year
  Sex: Female

DRUGS (5)
  1. CARBAMAZEPINE. [Concomitant]
     Active Substance: CARBAMAZEPINE
     Indication: PARTIAL SEIZURES
     Dosage: UNK
     Route: 065
  2. AMOXICILLIN. [Suspect]
     Active Substance: AMOXICILLIN
     Indication: LYMPHADENOPATHY
     Route: 065
  3. AMOXICILLIN. [Suspect]
     Active Substance: AMOXICILLIN
     Indication: PHARYNGITIS
  4. LAMOTRIGINE. [Suspect]
     Active Substance: LAMOTRIGINE
     Indication: PARTIAL SEIZURES
     Route: 065
  5. CARBAMAZEPINE. [Concomitant]
     Active Substance: CARBAMAZEPINE
     Dosage: SLOW TAPERING OFF
     Route: 065

REACTIONS (11)
  - Hepatic failure [Recovering/Resolving]
  - Fulminant type 1 diabetes mellitus [Not Recovered/Not Resolved]
  - Sepsis [Recovering/Resolving]
  - Seizure [Unknown]
  - Acute respiratory distress syndrome [Recovering/Resolving]
  - Hypovolaemic shock [Unknown]
  - Splenic infarction [Unknown]
  - Drug reaction with eosinophilia and systemic symptoms [Recovering/Resolving]
  - Pneumonia bacterial [Unknown]
  - Non-alcoholic steatohepatitis [Unknown]
  - Diabetic ketoacidosis [Unknown]
